APPROVED DRUG PRODUCT: CARBOPLATIN
Active Ingredient: CARBOPLATIN
Strength: 150MG/15ML (10MG/ML)
Dosage Form/Route: INJECTABLE;INTRAVENOUS
Application: A205487 | Product #002 | TE Code: AP
Applicant: EUGIA PHARMA SPECIALITIES LTD
Approved: Mar 28, 2016 | RLD: No | RS: No | Type: RX